FAERS Safety Report 10410761 (Version 1)
Quarter: 2014Q3

REPORT INFORMATION
  Report Type: Report from Study
  Country: DE (occurrence: DE)
  Receive Date: 20140826
  Receipt Date: 20140826
  Transmission Date: 20150326
  Serious: Yes (Other)
  Sender: FDA-Public Use
  Company Number: PHHY2014DE090762

PATIENT
  Sex: Female
  Weight: 80 kg

DRUGS (11)
  1. PROCORALAN [Concomitant]
     Active Substance: IVABRADINE
  2. BEPANTEN [Concomitant]
     Dates: start: 201404
  3. ENALAPRIL [Concomitant]
     Active Substance: ENALAPRIL
  4. HYDROCHLOROTHIAZIDE AND TRIAMTERENE [Concomitant]
     Active Substance: HYDROCHLOROTHIAZIDE\TRIAMTERENE
  5. CARBIMAZOLE [Concomitant]
     Active Substance: CARBIMAZOLE
     Dosage: 10 MG, UNK
  6. XARELTO [Concomitant]
     Active Substance: RIVAROXABAN
     Dosage: 20 MG, QD
  7. ULTIBRO BREEZHALER [Suspect]
     Active Substance: GLYCOPYRRONIUM\INDACATEROL
     Dosage: 1 DF, QD
     Dates: start: 20140117
  8. DIGITOXIN [Concomitant]
     Active Substance: DIGITOXIN
  9. PANTOZOL [Concomitant]
     Active Substance: PANTOPRAZOLE SODIUM
     Dosage: 20 MG, UNK
  10. BERODUAL N [Concomitant]
     Active Substance: FENOTEROL HYDROBROMIDE\IPRATROPIUM BROMIDE
     Dates: start: 20121220
  11. DAXAS [Concomitant]
     Active Substance: ROFLUMILAST
     Dosage: 500 UG, QD
     Dates: start: 20100924

REACTIONS (1)
  - Deep vein thrombosis [Unknown]

NARRATIVE: CASE EVENT DATE: 201402
